FAERS Safety Report 10413455 (Version 1)
Quarter: 2014Q3

REPORT INFORMATION
  Report Type: Spontaneous
  Country: US (occurrence: US)
  Receive Date: 20140827
  Receipt Date: 20140827
  Transmission Date: 20150326
  Serious: No
  Sender: FDA-Public Use
  Company Number: US-009507513-1408USA015101

PATIENT
  Age: 77 Year
  Sex: Female

DRUGS (1)
  1. DULERA [Suspect]
     Active Substance: FORMOTEROL FUMARATE DIHYDRATE\MOMETASONE FUROATE
     Indication: ASTHMA
     Dosage: DOSE/FREQUENCY-ONE PUFF TWICE DAILY,ROUTE-ORAL INHALER
     Dates: start: 20140730

REACTIONS (2)
  - Arthritis [Unknown]
  - Drug dose omission [Unknown]
